FAERS Safety Report 6310065-8 (Version None)
Quarter: 2009Q3

REPORT INFORMATION
  Report Type: 
  Country: None (occurrence: None)
  Receive Date: 20090811
  Receipt Date: 20090730
  Transmission Date: 20100115
  Serious: Yes (Other)
  Sender: FDA-Public Use
  Company Number: 233060K08USA

PATIENT
  Age: 58 Year
  Sex: Female

DRUGS (2)
  1. REBIF [Suspect]
     Indication: MULTIPLE SCLEROSIS
     Dosage: 44 MCG, 3 IN 1 WEEKS, SUBCUTANEOUS
     Route: 058
     Dates: start: 20040403
  2. STEROIDS (CORTICOSTEROIDS) [Concomitant]

REACTIONS (5)
  - BASAL CELL CARCINOMA [None]
  - GLUCOSE TOLERANCE IMPAIRED [None]
  - INFLUENZA LIKE ILLNESS [None]
  - NEOPLASM RECURRENCE [None]
  - POSTOPERATIVE WOUND INFECTION [None]
